FAERS Safety Report 9493898 (Version 1)
Quarter: 2013Q3

REPORT INFORMATION
  Report Type: Report from Study
  Country: BE (occurrence: BE)
  Receive Date: 20130903
  Receipt Date: 20130903
  Transmission Date: 20140515
  Serious: Yes (Hospitalization)
  Sender: FDA-Public Use
  Company Number: BE-AMGEN-BELCT2013061288

PATIENT
  Age: 62 Year
  Sex: Female
  Weight: 64 kg

DRUGS (4)
  1. ETANERCEPT [Suspect]
     Indication: RHEUMATOID ARTHRITIS
     Dosage: 25 MG, 2 TIMES/WK
     Route: 058
     Dates: start: 20070701
  2. CLOZAN [Concomitant]
     Dosage: 10 MG, QD
     Route: 048
     Dates: start: 2000
  3. MOTENS [Concomitant]
     Dosage: 4 MG, QD
     Route: 048
     Dates: start: 1999
  4. METHOTREXATE [Concomitant]
     Dosage: 7.5 MG, QD
     Route: 048
     Dates: start: 199707

REACTIONS (2)
  - Pelvi-ureteric obstruction [Recovered/Resolved]
  - Condition aggravated [Recovered/Resolved]
